FAERS Safety Report 23982216 (Version 1)
Quarter: 2024Q2

REPORT INFORMATION
  Report Type: Spontaneous
  Country: US (occurrence: None)
  Receive Date: 20240616
  Receipt Date: 20240616
  Transmission Date: 20240716
  Serious: Yes (Other)
  Sender: FDA-Public Use
  Company Number: None

PATIENT
  Age: 63 Year
  Sex: Female
  Weight: 83.25 kg

DRUGS (12)
  1. TIRZEPATIDE [Suspect]
     Active Substance: TIRZEPATIDE
     Indication: Diabetes mellitus
     Dosage: 4 INJECTIONS ONCE/WEEK INTRAMUSCULAR
     Route: 030
     Dates: start: 20240605, end: 20240613
  2. TIRZEPATIDE [Suspect]
     Active Substance: TIRZEPATIDE
     Indication: Weight increased
  3. SEMAGLUTIDE [Suspect]
     Active Substance: SEMAGLUTIDE
  4. CRESTOR [Concomitant]
     Active Substance: ROSUVASTATIN CALCIUM
  5. ELIQUIS [Concomitant]
     Active Substance: APIXABAN
  6. ZOLPIDEM [Concomitant]
     Active Substance: ZOLPIDEM TARTRATE
  7. LISINOPRIL [Concomitant]
     Active Substance: LISINOPRIL
  8. EZEMTIBE [Concomitant]
  9. METFORMIN [Concomitant]
     Active Substance: METFORMIN HYDROCHLORIDE
  10. VITAMIN D NOS [Concomitant]
     Active Substance: CHOLECALCIFEROL\ERGOCALCIFEROL
  11. MINERALS\VITAMINS [Concomitant]
     Active Substance: MINERALS\VITAMINS
  12. DIETARY SUPPLEMENT [Concomitant]
     Active Substance: DIETARY SUPPLEMENT

REACTIONS (7)
  - Glycosylated haemoglobin increased [None]
  - Nausea [None]
  - Confusional state [None]
  - Underdose [None]
  - Fear [None]
  - Insomnia [None]
  - Product compounding quality issue [None]

NARRATIVE: CASE EVENT DATE: 20240613
